FAERS Safety Report 8071221-4 (Version None)
Quarter: 2012Q1

REPORT INFORMATION
  Report Type: 
  Country: None (occurrence: None)
  Receive Date: 20120125
  Receipt Date: 20120120
  Transmission Date: 20120608
  Serious: Yes (Hospitalization, Other)
  Sender: FDA-Public Use
  Company Number: PHHO2009JP15061

PATIENT
  Sex: Male
  Weight: 41 kg

DRUGS (20)
  1. MEDROL [Concomitant]
     Indication: RENAL TRANSPLANT
     Dosage: 4 MG, UNK
     Route: 048
     Dates: start: 20081024
  2. LASIX [Concomitant]
     Indication: RENAL HYPERTENSION
     Dosage: 20 MG, UNK
     Route: 048
     Dates: start: 20110512
  3. SPIRIVA [Concomitant]
     Indication: EMPHYSEMA
     Dosage: UNK
     Dates: start: 20080430
  4. CERTICAN [Suspect]
     Dosage: 1 MG, UNK
     Route: 048
     Dates: start: 20091210, end: 20100420
  5. NEORAL [Suspect]
     Indication: RENAL TRANSPLANT
     Dosage: 40 MG, UNK
     Route: 048
     Dates: start: 20090924
  6. SIMULECT [Concomitant]
     Indication: RENAL TRANSPLANT
     Dosage: 20 MG, UNK
  7. CANDESARTAN CILEXETIL [Concomitant]
     Indication: RENAL HYPERTENSION
     Dosage: 8 MG, UNK
     Route: 048
     Dates: start: 20080813
  8. CERTICAN [Suspect]
     Indication: RENAL TRANSPLANT
     Dosage: 1 MG, UNK
     Route: 048
     Dates: start: 20090701, end: 20091203
  9. PRAVASTATIN SODIUM [Concomitant]
     Indication: HYPERCHOLESTEROLAEMIA
     Dosage: 5 MG, UNK
     Route: 048
     Dates: start: 20081211
  10. BISOPROLOL FUMARATE [Concomitant]
     Indication: RENAL HYPERTENSION
     Dosage: 5 MG, UNK
     Route: 048
     Dates: start: 20080918
  11. ACTONEL [Concomitant]
     Indication: OSTEOPOROSIS
     Dosage: 17.5 MG, UNK
     Route: 048
     Dates: start: 20100506
  12. URINORM [Concomitant]
     Indication: HYPERURICAEMIA
     Dosage: 50 MG, UNK
     Route: 048
     Dates: start: 20080918
  13. NEUER [Concomitant]
     Indication: GASTRITIS PROPHYLAXIS
     Dosage: 600 MG, UNK
     Route: 048
     Dates: start: 20080709
  14. NORVASC [Concomitant]
     Indication: RENAL HYPERTENSION
     Dosage: 13.5 MG, UNK
     Route: 048
     Dates: start: 20090108
  15. DOXAZOSIN MESYLATE [Concomitant]
     Indication: RENAL HYPERTENSION
     Dosage: 2 MG, UNK
     Route: 048
     Dates: start: 20090123
  16. CERTICAN [Suspect]
     Dosage: 1 MG, UNK
     Route: 048
     Dates: start: 20100426
  17. LANSOPRAZOLE [Concomitant]
     Indication: GASTRITIS PROPHYLAXIS
     Dosage: 15 MG, UNK
     Route: 048
     Dates: start: 20081226
  18. ADALAT [Concomitant]
     Indication: RENAL HYPERTENSION
     Dosage: 20 MG, UNK
     Route: 048
     Dates: start: 20100916
  19. OLMESARTAN MEDOXOMIL [Concomitant]
     Indication: RENAL HYPERTENSION
     Dosage: 20 MG, UNK
     Route: 048
     Dates: start: 20100819
  20. ISODINE [Concomitant]
     Indication: INFECTION PROPHYLAXIS
     Dosage: UNK
     Dates: start: 20080630

REACTIONS (5)
  - NEPHROPATHY [None]
  - PNEUMONIA [None]
  - PNEUMONIA BACTERIAL [None]
  - PYREXIA [None]
  - PNEUMOTHORAX [None]
